FAERS Safety Report 6446442-4 (Version None)
Quarter: 2009Q4

REPORT INFORMATION
  Report Type: 
  Country: None (occurrence: None)
  Receive Date: 20091119
  Receipt Date: 20091110
  Transmission Date: 20100525
  Serious: Yes (Hospitalization)
  Sender: FDA-Public Use
  Company Number: PHEH2009US15369

PATIENT
  Sex: Male

DRUGS (1)
  1. EXJADE [Suspect]
     Indication: SICKLE CELL ANAEMIA
     Dosage: 1500 MG DAILY
     Route: 048
     Dates: start: 20080131

REACTIONS (2)
  - PAIN [None]
  - SICKLE CELL ANAEMIA WITH CRISIS [None]
